FAERS Safety Report 19874372 (Version 1)
Quarter: 2021Q3

REPORT INFORMATION
  Report Type: Spontaneous
  Country: US (occurrence: US)
  Receive Date: 20210923
  Receipt Date: 20210923
  Transmission Date: 20211014
  Serious: Yes (Other)
  Sender: FDA-Public Use
  Company Number: US-SLATE RUN PHARMACEUTICALS-21US000686

PATIENT

DRUGS (2)
  1. AZITHROMYCIN USP [Suspect]
     Active Substance: AZITHROMYCIN
     Indication: CAMPYLOBACTER GASTROENTERITIS
     Dosage: UNK
  2. IMMUNOGLOBULINS NOS [Concomitant]
     Active Substance: IMMUNE GLOBULIN NOS
     Indication: BRUTON^S AGAMMAGLOBULINAEMIA
     Dosage: UNK, 1/WEEK

REACTIONS (4)
  - Campylobacter gastroenteritis [Recovered/Resolved]
  - Treatment failure [Unknown]
  - Bacteraemia [Recovered/Resolved]
  - Off label use [Recovered/Resolved]
